FAERS Safety Report 25389804 (Version 1)
Quarter: 2025Q2

REPORT INFORMATION
  Report Type: Spontaneous
  Country: US (occurrence: US)
  Receive Date: 20250603
  Receipt Date: 20250603
  Transmission Date: 20250717
  Serious: No
  Sender: BAYER HEALTHCARE PHARMACEUTICALS INC.
  Company Number: US-BAYER-2025A071218

PATIENT
  Age: 47 Year
  Sex: Female

DRUGS (2)
  1. MIRENA [Suspect]
     Active Substance: LEVONORGESTREL
     Indication: Postmenopausal haemorrhage
     Dosage: 20?G/DAY
     Route: 015
     Dates: start: 202504
  2. ESTROGENS [Concomitant]
     Active Substance: ESTROGENS
     Route: 062

REACTIONS (2)
  - Dyspnoea [None]
  - Product use in unapproved indication [None]
